FAERS Safety Report 17376253 (Version 1)
Quarter: 2020Q1

REPORT INFORMATION
  Report Type: Spontaneous
  Country: US (occurrence: US)
  Receive Date: 20200206
  Receipt Date: 20200206
  Transmission Date: 20200409
  Serious: Yes (Other)
  Sender: FDA-Public Use
  Company Number: US-ROCHE-2536300

PATIENT
  Sex: Male
  Weight: 72.64 kg

DRUGS (3)
  1. OCREVUS [Suspect]
     Active Substance: OCRELIZUMAB
     Indication: PRIMARY PROGRESSIVE MULTIPLE SCLEROSIS
     Route: 042
     Dates: start: 20190111
  2. SERTRALINE [Concomitant]
     Active Substance: SERTRALINE HYDROCHLORIDE
  3. MELATONIN [Concomitant]
     Active Substance: MELATONIN

REACTIONS (5)
  - Cataract [Unknown]
  - Insomnia [Unknown]
  - Weight increased [Unknown]
  - Pain in extremity [Unknown]
  - Intraocular pressure increased [Unknown]
